FAERS Safety Report 20764164 (Version 1)
Quarter: 2022Q2

REPORT INFORMATION
  Report Type: Spontaneous
  Country: US (occurrence: None)
  Receive Date: 20220428
  Receipt Date: 20220428
  Transmission Date: 20220720
  Serious: No
  Sender: FDA-Public Use
  Company Number: None

PATIENT
  Age: 77 Year
  Sex: Female
  Weight: 79.65 kg

DRUGS (8)
  1. FLUOROURACIL CREAM [Suspect]
     Active Substance: FLUOROURACIL
     Indication: Basal cell carcinoma
     Dosage: OTHER QUANTITY : 1 1;?FREQUENCY : EVERY 12 HOURS;?
     Route: 061
     Dates: start: 20220410, end: 20220425
  2. LISINOPRIL [Concomitant]
     Active Substance: LISINOPRIL
  3. TRAZODONE [Concomitant]
     Active Substance: TRAZODONE HYDROCHLORIDE
  4. Metformen [Concomitant]
  5. IBUPROFEN [Concomitant]
     Active Substance: IBUPROFEN
  6. VITAMIN C [Concomitant]
     Active Substance: ASCORBIC ACID
  7. POTASSIUM [Concomitant]
     Active Substance: POTASSIUM
  8. VITAMINS [Concomitant]
     Active Substance: VITAMINS

REACTIONS (3)
  - Vertigo [None]
  - Electric shock sensation [None]
  - Headache [None]

NARRATIVE: CASE EVENT DATE: 20220425
